FAERS Safety Report 10160459 (Version 2)
Quarter: 2014Q3

REPORT INFORMATION
  Report Type: Spontaneous
  Country: IT (occurrence: IT)
  Receive Date: 20140508
  Receipt Date: 20140723
  Transmission Date: 20150326
  Serious: Yes (Hospitalization)
  Sender: FDA-Public Use
  Company Number: IT-PFIZER INC-2014125029

PATIENT
  Age: 81 Year
  Sex: Female

DRUGS (7)
  1. SEACOR [Concomitant]
     Active Substance: OMEGA-3 FATTY ACIDS
  2. CARDIOASPIRIN [Concomitant]
     Active Substance: ASPIRIN
  3. MEDEOROS [Concomitant]
  4. LYRICA [Suspect]
     Active Substance: PREGABALIN
     Indication: PAIN
     Dosage: 3 DF, DAILY
     Route: 048
     Dates: start: 20130901, end: 20140218
  5. XANAX [Suspect]
     Active Substance: ALPRAZOLAM
     Indication: ANXIETY
     Dosage: 1 DF, DAILY
     Route: 048
     Dates: start: 20130901, end: 20140218
  6. TARGIN [Suspect]
     Active Substance: NALOXONE HYDROCHLORIDE\OXYCODONE HYDROCHLORIDE
     Indication: PAIN
     Dosage: 1 DF, DAILY
     Route: 048
     Dates: start: 20130901, end: 20140218
  7. NORVASC [Concomitant]
     Active Substance: AMLODIPINE BESYLATE

REACTIONS (3)
  - Blood fibrinogen increased [Recovering/Resolving]
  - Oxygen saturation decreased [Recovering/Resolving]
  - Bradyphrenia [Recovering/Resolving]

NARRATIVE: CASE EVENT DATE: 20140216
